FAERS Safety Report 11968328 (Version 2)
Quarter: 2016Q1

REPORT INFORMATION
  Report Type: Report from Study
  Country: ZA (occurrence: ZA)
  Receive Date: 20160128
  Receipt Date: 20160209
  Transmission Date: 20160526
  Serious: Yes (Other)
  Sender: FDA-Public Use
  Company Number: ZA-AMGEN-ZAFCT2016009133

PATIENT
  Age: 72 Year
  Sex: Female
  Weight: 76 kg

DRUGS (21)
  1. TRAMCET [Concomitant]
     Active Substance: ACETAMINOPHEN\TRAMADOL
     Indication: PAIN
     Dosage: 2 DF (TABLET), 3X/DAY (TDS)
     Route: 048
     Dates: start: 20150505
  2. ETANERCEPT [Suspect]
     Active Substance: ETANERCEPT
     Indication: RHEUMATOID ARTHRITIS
     Dosage: 50 MG, QWK
     Route: 058
     Dates: start: 20151022, end: 20151205
  3. PANADO [Concomitant]
     Active Substance: ACETAMINOPHEN
     Indication: RHEUMATOID ARTHRITIS
     Dosage: 1 G, 3X/DAY
     Route: 048
     Dates: start: 2005
  4. SALAZOPYRIN [Concomitant]
     Active Substance: SULFASALAZINE
     Indication: RHEUMATOID ARTHRITIS
     Dosage: 3 DF(TABLETS), 2X/DAY
     Route: 048
     Dates: start: 2015, end: 2015
  5. VIGAMOX [Concomitant]
     Active Substance: MOXIFLOXACIN HYDROCHLORIDE
     Indication: CATARACT OPERATION
     Dosage: 1 DF (DROP), 4X/DAY
     Route: 047
     Dates: start: 20151117
  6. COZAAR PLUS [Concomitant]
     Indication: HYPERTENSION
     Dosage: 100 MG, DAILY
     Route: 048
     Dates: start: 2005
  7. ANILAR [Concomitant]
     Indication: CATARACT OPERATION
     Dosage: 1 DF (DROP), 4X/DAY
     Route: 047
     Dates: start: 20151117
  8. CHLOROQUIN                         /00001002/ [Concomitant]
     Indication: RHEUMATOID ARTHRITIS
     Dosage: 200 UG, DAILY
     Route: 048
     Dates: start: 2005, end: 2005
  9. METHOTREXATE [Concomitant]
     Active Substance: METHOTREXATE
     Indication: RHEUMATOID ARTHRITIS
     Dosage: 10 MG, WEEKLY
     Route: 048
     Dates: start: 2005
  10. STILNOX [Concomitant]
     Active Substance: ZOLPIDEM TARTRATE
     Indication: INSOMNIA
     Dosage: 10 MG, DAILY
     Route: 048
     Dates: start: 20150505
  11. CALTRATE PLUS                      /01438001/ [Concomitant]
     Active Substance: CALCIUM\CHOLECALCIFEROL\COPPER\MAGNESIUM\MANGANESE\ZINC
     Dosage: 1 DF (TABLET), 2X/DAY
     Route: 048
     Dates: start: 2005
  12. XYZALL [Concomitant]
     Active Substance: LEVOCETIRIZINE DIHYDROCHLORIDE
     Indication: HYPERSENSITIVITY
     Dosage: 1 DF, DAILY
     Route: 048
     Dates: start: 20151112
  13. TOBRADEX [Concomitant]
     Active Substance: DEXAMETHASONE\TOBRAMYCIN
     Indication: CATARACT OPERATION
     Dosage: 1 DF (DROP), 4X/DAY (QID)
     Route: 047
     Dates: start: 20151117
  14. CALCIFEROL                         /00107901/ [Concomitant]
     Indication: OSTEOPENIA
     Dosage: 50000 DF, WEEKLY
     Route: 042
     Dates: start: 2005
  15. VITAMIN B12 [Concomitant]
     Active Substance: CYANOCOBALAMIN
     Indication: ANAEMIA
     Dosage: 10000 UG, 2X/DAY(BID)
     Route: 048
     Dates: start: 2005
  16. CALCIFEROL                         /00107901/ [Concomitant]
     Indication: OSTEOPENIA
     Dosage: 50000 DF, WEEKLY
     Route: 042
     Dates: start: 2005
  17. CALTRATE PLUS                      /01438001/ [Concomitant]
     Active Substance: CALCIUM\CHOLECALCIFEROL\COPPER\MAGNESIUM\MANGANESE\ZINC
     Dosage: 1 DF (TABLET), 2X/DAY
     Route: 048
     Dates: start: 2005
  18. CHLOROQUIN                         /00001002/ [Concomitant]
     Indication: RHEUMATOID ARTHRITIS
     Dosage: 200 UG, DAILY
     Route: 048
     Dates: start: 2005, end: 2005
  19. VITAMIN B12 [Concomitant]
     Active Substance: CYANOCOBALAMIN
     Indication: ANAEMIA
     Dosage: 10000 UG, 2X/DAY(BID)
     Route: 048
     Dates: start: 2005
  20. PANADO [Concomitant]
     Active Substance: ACETAMINOPHEN
     Indication: PAIN
  21. PREDNISONE. [Concomitant]
     Active Substance: PREDNISONE
     Indication: HYPERSENSITIVITY
     Dosage: 5 MG, DAILY
     Dates: start: 20151112

REACTIONS (1)
  - Dermatitis allergic [Not Recovered/Not Resolved]

NARRATIVE: CASE EVENT DATE: 20151210
